FAERS Safety Report 9917763 (Version 2)
Quarter: 2014Q1

REPORT INFORMATION
  Report Type: Report from Study
  Country: JP (occurrence: JP)
  Receive Date: 20140221
  Receipt Date: 20140310
  Transmission Date: 20141002
  Serious: Yes (Life-Threatening, Other)
  Sender: FDA-Public Use
  Company Number: JP-009507513-1402JPN010692

PATIENT
  Age: 67 Year
  Sex: Female

DRUGS (3)
  1. FAMOTIDINE [Suspect]
     Route: 048
  2. BLOPRESS [Suspect]
     Route: 048
  3. PHENOBARBITAL [Suspect]
     Indication: EPILEPSY

REACTIONS (1)
  - Stevens-Johnson syndrome [Unknown]
